FAERS Safety Report 10039474 (Version 1)
Quarter: 2014Q1

REPORT INFORMATION
  Report Type: Spontaneous
  Country: FR (occurrence: FR)
  Receive Date: 20140326
  Receipt Date: 20140326
  Transmission Date: 20141002
  Serious: Yes (Death)
  Sender: FDA-Public Use
  Company Number: FR-CELGENEUS-056-21880-14032573

PATIENT
  Age: 74 Year
  Sex: Male
  Weight: 78 kg

DRUGS (3)
  1. REVLIMID [Suspect]
     Indication: PLASMA CELL MYELOMA
     Route: 048
     Dates: start: 20131017, end: 20140310
  2. BLINDED MLN9708 [Suspect]
     Indication: PLASMA CELL MYELOMA
     Route: 048
     Dates: start: 20131017, end: 20140310
  3. DEXAMETHASONE [Suspect]
     Indication: PLASMA CELL MYELOMA
     Route: 048
     Dates: start: 20131017, end: 20140305

REACTIONS (1)
  - Myocardial infarction [Fatal]
